FAERS Safety Report 4655453-0 (Version None)
Quarter: 2005Q2

REPORT INFORMATION
  Report Type: 
  Country: None (occurrence: None)
  Receive Date: 20050505
  Receipt Date: 20050425
  Transmission Date: 20051028
  Serious: Yes (Other)
  Sender: FDA-Public Use
  Company Number: 2005065567

PATIENT
  Age: 47 Year
  Sex: Female
  Weight: 68.0396 kg

DRUGS (2)
  1. AZITHROMYCIN [Suspect]
     Indication: INFECTION
     Dosage: 500 MG (250 MG, DAILY INTERVAL: EVERY DAY), ORAL
     Route: 048
     Dates: start: 20050411, end: 20050411
  2. CONJUGATED ESTROGENS [Concomitant]

REACTIONS (3)
  - DYSPNOEA [None]
  - FEELING COLD [None]
  - HYPERSENSITIVITY [None]
